FAERS Safety Report 9246961 (Version 1)
Quarter: 2013Q2

REPORT INFORMATION
  Report Type: Spontaneous
  Country: CA (occurrence: CA)
  Receive Date: 20130422
  Receipt Date: 20130422
  Transmission Date: 20140414
  Serious: Yes (Hospitalization)
  Sender: FDA-Public Use
  Company Number: CA-AMGEN-CANSP2013027496

PATIENT
  Age: 62 Year
  Sex: Female

DRUGS (5)
  1. NEUPOGEN [Suspect]
     Indication: BREAST CANCER
     Dosage: 1ML/300MCG
     Dates: start: 20130319
  2. TAXOTERE [Concomitant]
     Indication: BREAST CANCER
     Dosage: UNK
  3. HERCEPTIN [Concomitant]
     Indication: BREAST CANCER
     Dosage: UNK
  4. ATIVAN [Concomitant]
     Dosage: UNK
  5. ASA [Concomitant]
     Dosage: 81 MG, UNK

REACTIONS (8)
  - Neutropenia [Recovered/Resolved]
  - Renal disorder [Recovered/Resolved]
  - Liver injury [Recovered/Resolved]
  - Injection site bruising [Recovered/Resolved]
  - Palpitations [Not Recovered/Not Resolved]
  - Red blood cell count decreased [Not Recovered/Not Resolved]
  - Insomnia [Not Recovered/Not Resolved]
  - Disturbance in attention [Not Recovered/Not Resolved]
